FAERS Safety Report 22540640 (Version 2)
Quarter: 2025Q2

REPORT INFORMATION
  Report Type: Spontaneous
  Country: US (occurrence: US)
  Receive Date: 20230609
  Receipt Date: 20250516
  Transmission Date: 20250716
  Serious: No
  Sender: SANOFI AVENTIS
  Company Number: US-SA-SAC20230607000471

PATIENT
  Age: 62 Year
  Sex: Female
  Weight: 48.9 kg

DRUGS (11)
  1. DUPIXENT [Suspect]
     Active Substance: DUPILUMAB
     Indication: Dermatitis atopic
     Dosage: 300 MG, QOW
     Route: 058
     Dates: start: 20180703, end: 20230527
  2. DUPIXENT [Suspect]
     Active Substance: DUPILUMAB
     Dosage: 300 MG, QOW
     Route: 058
  3. PFIZER-BIONTECH COVID-19 VACCINE [Concomitant]
     Active Substance: TOZINAMERAN
     Indication: Immunisation
  4. GABAPENTIN [Concomitant]
     Active Substance: GABAPENTIN
  5. ENTRESTO [Concomitant]
     Active Substance: SACUBITRIL\VALSARTAN
  6. PROLIA [Concomitant]
     Active Substance: DENOSUMAB
  7. METOPROLOL SUCCINATE [Concomitant]
     Active Substance: METOPROLOL SUCCINATE
  8. PREVALITE [Concomitant]
     Active Substance: CHOLESTYRAMINE
  9. CALCIUM [Concomitant]
     Active Substance: CALCIUM
  10. DOTTI [Concomitant]
     Active Substance: ESTRADIOL
  11. MAGNESIUM [Concomitant]
     Active Substance: MAGNESIUM

REACTIONS (5)
  - Malaise [Unknown]
  - Cough [Unknown]
  - Pyrexia [Unknown]
  - Peripheral swelling [Unknown]
  - Back pain [Unknown]
